FAERS Safety Report 18787082 (Version 1)
Quarter: 2021Q1

REPORT INFORMATION
  Report Type: Spontaneous
  Country: US (occurrence: US)
  Receive Date: 20210125
  Receipt Date: 20210125
  Transmission Date: 20210419
  Serious: Yes (Other)
  Sender: FDA-Public Use
  Company Number: None

PATIENT
  Age: 56 Year
  Sex: Female
  Weight: 117.48 kg

DRUGS (1)
  1. LEVOTHYROXINE 125MG [Suspect]
     Active Substance: LEVOTHYROXINE
     Indication: HYPOTHYROIDISM
     Route: 048
     Dates: start: 20201215

REACTIONS (2)
  - Product substitution issue [None]
  - Headache [None]

NARRATIVE: CASE EVENT DATE: 20210113
